FAERS Safety Report 8717009 (Version 4)
Quarter: 2012Q4

REPORT INFORMATION
  Report Type: 
  Country: JP (occurrence: JP)
  Receive Date: 20120810
  Receipt Date: 20121031
  Transmission Date: 20130627
  Serious: Yes (Other)
  Sender: FDA-Public Use
  Company Number: JP-JNJFOC-20120804015

PATIENT
  Age: 45 Year
  Sex: Female

DRUGS (2)
  1. REMICADE [Suspect]
     Indication: RHEUMATOID ARTHRITIS
     Dosage: 0 (initial dose of 3 mg/kg), 2, and 6 weeks and then every 8 weeks
     Route: 042
     Dates: end: 20060125
  2. RHEUMATREX [Suspect]
     Indication: RHEUMATOID ARTHRITIS
     Route: 048

REACTIONS (4)
  - DNA antibody positive [Recovered/Resolved]
  - Leukopenia [Unknown]
  - Alopecia [Unknown]
  - Drug ineffective [Unknown]
